FAERS Safety Report 8233966-2 (Version None)
Quarter: 2012Q1

REPORT INFORMATION
  Report Type: 
  Country: None (occurrence: None)
  Receive Date: 20120322
  Receipt Date: 20120313
  Transmission Date: 20120608
  Serious: Yes (Other)
  Sender: FDA-Public Use
  Company Number: 2012SP013851

PATIENT
  Sex: Male

DRUGS (4)
  1. PEGASYS [Suspect]
     Indication: HEPATITIS C
     Dates: start: 20070701, end: 20080701
  2. PEGASYS [Suspect]
     Indication: HEPATITIS C
     Dates: start: 20120227
  3. RIBAVIRIN [Suspect]
     Indication: HEPATITIS C
     Dates: start: 20070701, end: 20080701
  4. RIBAVIRIN [Suspect]
     Indication: HEPATITIS C
     Dates: start: 20120227

REACTIONS (6)
  - OEDEMA PERIPHERAL [None]
  - PANCREATITIS [None]
  - ENCEPHALOPATHY [None]
  - COMA [None]
  - DIABETES MELLITUS [None]
  - GASTROINTESTINAL HAEMORRHAGE [None]
